FAERS Safety Report 6166352-X (Version None)
Quarter: 2009Q2

REPORT INFORMATION
  Report Type: 
  Country: None (occurrence: None)
  Receive Date: 20090421
  Receipt Date: 20090421
  Transmission Date: 20091009
  Serious: Yes (Other)
  Sender: FDA-Public Use
  Company Number: None

PATIENT
  Age: 37 Year
  Sex: Female
  Weight: 55 kg

DRUGS (2)
  1. CIBALENAA (NCH) (CAFFEINE CITRATE, ACETYLSALICYLIC ACID, ACETAMINOPHEN [Suspect]
     Indication: HEADACHE
     Dosage: 1 TABLET, ORAL
     Route: 048
     Dates: start: 20090306
  2. SODIUM CHLORIDE [Concomitant]

REACTIONS (3)
  - ANGIOEDEMA [None]
  - BRONCHOSPASM [None]
  - SOMNOLENCE [None]
